FAERS Safety Report 17558515 (Version 1)
Quarter: 2020Q1

REPORT INFORMATION
  Report Type: Spontaneous
  Country: US (occurrence: US)
  Receive Date: 20200318
  Receipt Date: 20200318
  Transmission Date: 20200409
  Serious: No
  Sender: FDA-Public Use
  Company Number: NVSC2020US073222

PATIENT
  Age: 69 Year
  Sex: Female

DRUGS (4)
  1. GLATOPA [Suspect]
     Active Substance: GLATIRAMER ACETATE
     Indication: URTICARIA
  2. GLATOPA [Suspect]
     Active Substance: GLATIRAMER ACETATE
     Indication: PRURITUS
  3. GLATOPA [Suspect]
     Active Substance: GLATIRAMER ACETATE
     Indication: PALPITATIONS
  4. GLATOPA [Suspect]
     Active Substance: GLATIRAMER ACETATE
     Indication: DYSPNOEA
     Dosage: 40 MG, ONCE3SDO
     Route: 050
     Dates: start: 20200312

REACTIONS (5)
  - Back pain [Unknown]
  - Dyspnoea [Unknown]
  - Palpitations [Unknown]
  - Pruritus [Unknown]
  - Urticaria [Unknown]

NARRATIVE: CASE EVENT DATE: 20200312
